FAERS Safety Report 17521184 (Version 1)
Quarter: 2020Q1

REPORT INFORMATION
  Report Type: Spontaneous
  Country: US (occurrence: US)
  Receive Date: 20200310
  Receipt Date: 20200310
  Transmission Date: 20200409
  Serious: Yes (Other)
  Sender: FDA-Public Use
  Company Number: US-ROCHE-2562732

PATIENT
  Age: 81 Year
  Sex: Male
  Weight: 88.9 kg

DRUGS (4)
  1. IBRANCE [Suspect]
     Active Substance: PALBOCICLIB
     Indication: BREAST CANCER METASTATIC
     Route: 065
     Dates: start: 20180926
  2. XGEVA [Concomitant]
     Active Substance: DENOSUMAB
  3. XELODA [Suspect]
     Active Substance: CAPECITABINE
     Indication: BREAST CANCER METASTATIC
     Route: 048
     Dates: start: 20191006
  4. LETROZOLE. [Concomitant]
     Active Substance: LETROZOLE
     Route: 065

REACTIONS (1)
  - Oral disorder [Recovering/Resolving]

NARRATIVE: CASE EVENT DATE: 201906
